FAERS Safety Report 9403430 (Version 1)
Quarter: 2013Q3

REPORT INFORMATION
  Report Type: Spontaneous
  Country: GB (occurrence: GB)
  Receive Date: 20130716
  Receipt Date: 20130716
  Transmission Date: 20140515
  Serious: Yes (Other)
  Sender: FDA-Public Use
  Company Number: GB-B.I. PHARMACEUTICALS,INC./RIDGEFIELD-2013-UK-01399UK

PATIENT
  Sex: Male

DRUGS (1)
  1. CATAPRES [Suspect]

REACTIONS (1)
  - Petit mal epilepsy [Unknown]
